FAERS Safety Report 9377379 (Version 3)
Quarter: 2013Q3

REPORT INFORMATION
  Report Type: Spontaneous
  Country: US (occurrence: US)
  Receive Date: 20130701
  Receipt Date: 20130711
  Transmission Date: 20140515
  Serious: Yes (Other)
  Sender: FDA-Public Use
  Company Number: US-PFIZER INC-2013194441

PATIENT
  Age: 76 Year
  Sex: Female
  Weight: 113 kg

DRUGS (5)
  1. LYRICA [Suspect]
     Indication: DIABETIC NEUROPATHY
     Dosage: 50 MG, 1X/DAY
     Dates: start: 201302, end: 2013
  2. LYRICA [Suspect]
     Dosage: 50 MG, 2X/DAY
     Dates: start: 2013, end: 2013
  3. LYRICA [Suspect]
     Dosage: 50 MG, UNK
     Dates: start: 2013, end: 201305
  4. METFORMIN [Concomitant]
     Indication: DIABETES MELLITUS
     Dosage: 1000 MG, 2X/DAY
  5. TRADJENTA [Concomitant]
     Indication: DIABETES MELLITUS
     Dosage: 5 MG, 1X/DAY

REACTIONS (5)
  - Gastric haemorrhage [Unknown]
  - Abdominal pain upper [Unknown]
  - Erosive oesophagitis [Unknown]
  - Gastritis [Unknown]
  - Pain in extremity [Unknown]
